FAERS Safety Report 15684621 (Version 1)
Quarter: 2018Q4

REPORT INFORMATION
  Report Type: Spontaneous
  Country: US (occurrence: US)
  Receive Date: 20181204
  Receipt Date: 20181204
  Transmission Date: 20190205
  Serious: Yes (Other)
  Sender: FDA-Public Use
  Company Number: US-ANTARES PHARMA, INC.-2017-LIT-ME-0484

PATIENT
  Age: 51 Year
  Sex: Male

DRUGS (4)
  1. INFLIXIMAB [Suspect]
     Active Substance: INFLIXIMAB
     Indication: ERDHEIM-CHESTER DISEASE
     Dosage: UNK
  2. METHOTREXATE. [Suspect]
     Active Substance: METHOTREXATE
     Indication: ERDHEIM-CHESTER DISEASE
     Dosage: 17.5 MG, QWK
     Route: 048
  3. PREDNISONE. [Suspect]
     Active Substance: PREDNISONE
     Indication: ERDHEIM-CHESTER DISEASE
     Dosage: UNK
  4. ETANERCEPT [Suspect]
     Active Substance: ETANERCEPT
     Indication: ERDHEIM-CHESTER DISEASE
     Dosage: UNK

REACTIONS (2)
  - Arthralgia [Unknown]
  - Pharyngeal lesion [Unknown]
